FAERS Safety Report 15814647 (Version 1)
Quarter: 2019Q1

REPORT INFORMATION
  Report Type: Spontaneous
  Country: US (occurrence: US)
  Receive Date: 20190111
  Receipt Date: 20190111
  Transmission Date: 20190417
  Serious: No
  Sender: FDA-Public Use
  Company Number: US-SA-2019SA007361

PATIENT
  Age: 53 Year
  Sex: Male

DRUGS (1)
  1. PRALUENT [Suspect]
     Active Substance: ALIROCUMAB
     Dosage: 75 MG, QOW
     Route: 058
     Dates: start: 20181203, end: 20181231

REACTIONS (4)
  - Eye swelling [Unknown]
  - Rash [Unknown]
  - Ocular hyperaemia [Unknown]
  - Dry eye [Unknown]

NARRATIVE: CASE EVENT DATE: 201812
